FAERS Safety Report 7201309-9 (Version None)
Quarter: 2010Q4

REPORT INFORMATION
  Report Type: 
  Country: None (occurrence: None)
  Receive Date: 20101229
  Receipt Date: 20101220
  Transmission Date: 20110411
  Serious: Yes (Other)
  Sender: FDA-Public Use
  Company Number: US-JNJFOC-20100805181

PATIENT
  Sex: Male

DRUGS (1)
  1. LEVAQUIN [Suspect]
     Indication: ILL-DEFINED DISORDER
     Route: 048

REACTIONS (7)
  - JOINT INJURY [None]
  - JOINT SPRAIN [None]
  - PLANTAR FASCIITIS [None]
  - ROTATOR CUFF SYNDROME [None]
  - SYNOVITIS [None]
  - TENDON DISORDER [None]
  - TENDON RUPTURE [None]
